FAERS Safety Report 5448226-2 (Version None)
Quarter: 2007Q3

REPORT INFORMATION
  Report Type: 
  Country: None (occurrence: None)
  Receive Date: 20070906
  Receipt Date: 20070906
  Transmission Date: 20080115
  Serious: Yes (Other)
  Sender: FDA-Public Use
  Company Number: None

PATIENT
  Age: 44 Year
  Sex: Female
  Weight: 60.782 kg

DRUGS (1)
  1. KENALOG [Suspect]
     Indication: RHINITIS ALLERGIC
     Dosage: 80MG ONCE IM
     Route: 030
     Dates: start: 20070511, end: 20070511

REACTIONS (2)
  - MIGRAINE [None]
  - POLYMENORRHOEA [None]
